FAERS Safety Report 11544378 (Version 2)
Quarter: 2015Q3

REPORT INFORMATION
  Report Type: Spontaneous
  Country: US (occurrence: US)
  Receive Date: 20150924
  Receipt Date: 20150930
  Transmission Date: 20151125
  Serious: No
  Sender: FDA-Public Use
  Company Number: US-PFIZER INC-2015307763

PATIENT
  Age: 50 Year
  Sex: Female
  Weight: 71.66 kg

DRUGS (2)
  1. GABAPENTIN. [Suspect]
     Active Substance: GABAPENTIN
     Indication: HYPOAESTHESIA
     Dosage: 300 MG, UNK (ONE IN THE MORNING, ONE AT LUNCH, AND TWO AT NIGHT)
     Route: 048
     Dates: start: 201506
  2. GABAPENTIN. [Suspect]
     Active Substance: GABAPENTIN
     Indication: NEUROPATHY PERIPHERAL
     Dosage: 300 MG, 2X/DAY
     Route: 048
     Dates: start: 201506

REACTIONS (1)
  - Drug ineffective for unapproved indication [Unknown]
